FAERS Safety Report 18347551 (Version 2)
Quarter: 2020Q4

REPORT INFORMATION
  Report Type: Spontaneous
  Country: JP (occurrence: JP)
  Receive Date: 20201006
  Receipt Date: 20201020
  Transmission Date: 20210114
  Serious: Yes (Other)
  Sender: FDA-Public Use
  Company Number: JP-SUN PHARMACEUTICAL INDUSTRIES LTD-2020R1-263122

PATIENT
  Age: 48 Year
  Sex: Male

DRUGS (5)
  1. LEVOMEPROMAZINE [Concomitant]
     Active Substance: LEVOMEPROMAZINE
     Indication: SCHIZOPHRENIA
     Dosage: 25 MILLIGRAM, DAILY
     Route: 065
  2. PALIPERIDONE. [Concomitant]
     Active Substance: PALIPERIDONE
     Indication: SCHIZOPHRENIA
     Dosage: 6 MILLIGRAM, DAILY
     Route: 065
  3. HALOPERIDOL. [Concomitant]
     Active Substance: HALOPERIDOL
     Indication: SCHIZOPHRENIA
     Dosage: 3 MILLIGRAM, DAILY
     Route: 065
  4. CLOZAPINE. [Suspect]
     Active Substance: CLOZAPINE
     Indication: SCHIZOPHRENIA
     Dosage: 12.5 MILLIGRAM, DAILY (INCREASED BY 12.5 OR 25 MG/D EVERY 6-7 DAYS)
     Route: 065
  5. LITHIUM. [Concomitant]
     Active Substance: LITHIUM
     Indication: SCHIZOPHRENIA
     Dosage: 400 MILLIGRAM, DAILY
     Route: 065

REACTIONS (8)
  - Glomerular filtration rate decreased [Unknown]
  - C-reactive protein increased [Unknown]
  - Pyrexia [Unknown]
  - Eosinophilia [Recovered/Resolved]
  - Blood creatinine increased [Unknown]
  - Hepatic enzyme increased [Unknown]
  - Leukocytosis [Recovered/Resolved]
  - Cough [Unknown]
